FAERS Safety Report 5266919-7 (Version None)
Quarter: 2007Q1

REPORT INFORMATION
  Report Type: 
  Country: None (occurrence: None)
  Receive Date: 20061213
  Receipt Date: 20030312
  Transmission Date: 20070707
  Serious: No
  Sender: FDA-Public Use
  Company Number: 2003UW03412

PATIENT
  Age: 68 Year
  Sex: Male

DRUGS (4)
  1. TAMOXIFEN CITRATE [Suspect]
     Indication: GLIOBLASTOMA MULTIFORME
     Dosage: 240 MG DAILY PO
     Route: 048
     Dates: start: 20020306, end: 20020523
  2. PROPYLTHIOURACIL [Suspect]
     Indication: GLIOBLASTOMA MULTIFORME
     Dates: start: 20020306
  3. PROPYLTHIOURACIL [Suspect]
     Indication: HYPOTHYROIDISM
     Dates: start: 20020306
  4. RADIATION [Concomitant]

REACTIONS (1)
  - DEEP VEIN THROMBOSIS [None]
